FAERS Safety Report 14974888 (Version 1)
Quarter: 2018Q2

REPORT INFORMATION
  Report Type: Spontaneous
  Country: AU (occurrence: AU)
  Receive Date: 20180605
  Receipt Date: 20180605
  Transmission Date: 20180711
  Serious: Yes (Other)
  Sender: FDA-Public Use
  Company Number: AU-JNJFOC-20180601602

PATIENT

DRUGS (1)
  1. XARELTO [Suspect]
     Active Substance: RIVAROXABAN
     Indication: PRODUCT USED FOR UNKNOWN INDICATION
     Route: 048

REACTIONS (6)
  - Fluid retention [Unknown]
  - Weight increased [Unknown]
  - Disturbance in social behaviour [Unknown]
  - Anhedonia [Unknown]
  - Deep vein thrombosis [Unknown]
  - Emotional distress [Unknown]
